FAERS Safety Report 9686339 (Version 1)
Quarter: 2013Q4

REPORT INFORMATION
  Report Type: Spontaneous
  Country: IT (occurrence: None)
  Receive Date: 20131108
  Receipt Date: 20131108
  Transmission Date: 20140711
  Serious: Yes (Hospitalization)
  Sender: FDA-Public Use
  Company Number: AUR-APL-2013-09300

PATIENT
  Age: 42 Year
  Sex: Female

DRUGS (12)
  1. LAMIVUDINE [Suspect]
     Indication: HIV INFECTION
  2. TENOFOVIR [Suspect]
     Indication: HIV INFECTION
     Dates: start: 200801
  3. EMTRICITABINE [Suspect]
     Indication: HIV INFECTION
     Dates: start: 200801
  4. ATAZANAVIR [Suspect]
     Indication: HIV INFECTION
     Dates: start: 200801
  5. ABACAVIR [Suspect]
     Indication: HIV INFECTION
     Dates: start: 200801
  6. VALGANCICLOVIR [Suspect]
     Indication: VIRAL INFECTION
     Dosage: 450 MG, 1 D, ORAL
     Route: 048
     Dates: start: 200804
  7. ACICLOVIR (ACICLOVIR) [Concomitant]
  8. GANCICLOVIR (GANCICLOVIR) [Concomitant]
  9. PREDNISONE (PREDNISONE) [Concomitant]
  10. METHYLPREDNISOLONE (METHYLPREDNISOLONE) [Concomitant]
  11. ACICLOVIR (ACICLOVIR) [Concomitant]
  12. IMMUNOGLOBULIN (IMMUNOGLOBULIN HUMAN NORMAL) [Concomitant]

REACTIONS (17)
  - Headache [None]
  - Paraesthesia [None]
  - Amaurosis [None]
  - Hemianopia [None]
  - Tinnitus [None]
  - Vertigo [None]
  - Pleocytosis [None]
  - Retinal vascular occlusion [None]
  - CSF protein increased [None]
  - Vasculitis cerebral [None]
  - Cytomegalovirus chorioretinitis [None]
  - Haematotoxicity [None]
  - Visual field defect [None]
  - Cognitive disorder [None]
  - Diabetes mellitus [None]
  - Osteoporosis [None]
  - Spinal fracture [None]
